FAERS Safety Report 20103729 (Version 1)
Quarter: 2021Q4

REPORT INFORMATION
  Report Type: Spontaneous
  Country: US (occurrence: None)
  Receive Date: 20211123
  Receipt Date: 20211123
  Transmission Date: 20220303
  Serious: Yes (Disabling)
  Sender: FDA-Public Use
  Company Number: None

PATIENT
  Age: 25 Year
  Sex: Female
  Weight: 56.25 kg

DRUGS (3)
  1. HYDROCORTISONE [Suspect]
     Active Substance: HYDROCORTISONE
     Indication: Eczema
     Dates: start: 20160101, end: 20200120
  2. HYDROCORTISONE [Suspect]
     Active Substance: HYDROCORTISONE
     Indication: Erythema
  3. TRIAMCINOLONE [Suspect]
     Active Substance: TRIAMCINOLONE

REACTIONS (9)
  - Withdrawal syndrome [None]
  - Bedridden [None]
  - Burning sensation [None]
  - Skin weeping [None]
  - Skin exfoliation [None]
  - Pain [None]
  - Adrenal disorder [None]
  - Lymphadenopathy [None]
  - General physical health deterioration [None]

NARRATIVE: CASE EVENT DATE: 20200120
